FAERS Safety Report 17015197 (Version 1)
Quarter: 2019Q4

REPORT INFORMATION
  Report Type: Spontaneous
  Country: US (occurrence: US)
  Receive Date: 20191108
  Receipt Date: 20191108
  Transmission Date: 20200122
  Serious: Yes (Other)
  Sender: FDA-Public Use
  Company Number: None

PATIENT
  Age: 35 Year
  Sex: Female
  Weight: 81 kg

DRUGS (5)
  1. SPIRVA [Concomitant]
  2. CLARATIN [Concomitant]
  3. FASENRA [Suspect]
     Active Substance: BENRALIZUMAB
     Indication: ASTHMA
     Dates: start: 20190613, end: 20191001
  4. FLONASE [Concomitant]
     Active Substance: FLUTICASONE PROPIONATE
  5. SYMBICORT [Concomitant]
     Active Substance: BUDESONIDE\FORMOTEROL FUMARATE DIHYDRATE

REACTIONS (3)
  - Nasal congestion [None]
  - Nasal polyps [None]
  - Alopecia [None]

NARRATIVE: CASE EVENT DATE: 20190613
